FAERS Safety Report 5967686-1 (Version None)
Quarter: 2008Q4

REPORT INFORMATION
  Report Type: 
  Country: None (occurrence: None)
  Receive Date: 20081126
  Receipt Date: 20081121
  Transmission Date: 20090506
  Serious: Yes (Death, Hospitalization, Other)
  Sender: FDA-Public Use
  Company Number: PHHY2008US29259

PATIENT
  Sex: Male
  Weight: 45 kg

DRUGS (5)
  1. TASIGNA [Suspect]
     Indication: CHRONIC MYELOID LEUKAEMIA
     Dosage: 200 MG, BID
     Route: 048
     Dates: start: 20080117, end: 20081111
  2. LINEZOLID [Concomitant]
     Dosage: 600 MG, Q12H
     Route: 042
  3. VALPROIC ACID [Concomitant]
     Dosage: 250 MG, Q8H
     Route: 048
  4. VALACYCLOVIR HCL [Concomitant]
     Indication: PNEUMONIA
     Dosage: 500 MG, TID
     Route: 048
  5. METHADONE HCL [Concomitant]
     Indication: PNEUMONIA

REACTIONS (7)
  - BLAST CELLS PRESENT [None]
  - BLAST CRISIS IN MYELOGENOUS LEUKAEMIA [None]
  - BONE MARROW DISORDER [None]
  - CARDIO-RESPIRATORY ARREST [None]
  - LUNG INFILTRATION [None]
  - PNEUMONIA [None]
  - RESPIRATORY FAILURE [None]
